FAERS Safety Report 15017717 (Version 1)
Quarter: 2018Q2

REPORT INFORMATION
  Report Type: Spontaneous
  Country: DE (occurrence: DE)
  Receive Date: 20180615
  Receipt Date: 20180615
  Transmission Date: 20180711
  Serious: Yes (Hospitalization, Other)
  Sender: FDA-Public Use
  Company Number: DE-DRREDDYS-GER/GER/18/0100075

PATIENT
  Age: 0 Year
  Sex: Male
  Weight: 1.83 kg

DRUGS (4)
  1. METOPROLOL. [Suspect]
     Active Substance: METOPROLOL
     Indication: HELLP SYNDROME
     Dosage: 95 [MG/D ]
     Route: 063
  2. NEPRESOL (DIHYDRALAZINE SULFATE) [Suspect]
     Active Substance: DIHYDRALAZINE SULFATE
     Indication: HELLP SYNDROME
     Dosage: 50 [MG/D ]
     Route: 063
  3. ADALAT [Suspect]
     Active Substance: NIFEDIPINE
     Indication: HELLP SYNDROME
     Dosage: 40 [MG/D ]
     Route: 063
  4. METHYLDOPA. [Suspect]
     Active Substance: METHYLDOPA
     Indication: HELLP SYNDROME
     Dosage: 1500 [MG/D ]

REACTIONS (2)
  - Infantile apnoea [Recovered/Resolved]
  - Bradycardia neonatal [Recovered/Resolved]
